FAERS Safety Report 7176484-5 (Version None)
Quarter: 2010Q4

REPORT INFORMATION
  Report Type: 
  Country: None (occurrence: None)
  Receive Date: 20101215
  Receipt Date: 20101215
  Transmission Date: 20110411
  Serious: No
  Sender: FDA-Public Use
  Company Number: None

PATIENT
  Sex: Female
  Weight: 54.4316 kg

DRUGS (4)
  1. FLUOXETINE [Suspect]
     Indication: DRUG EFFECT DECREASED
     Dosage: 20MG DAILY PO (~12 MONTHS AGO)
     Route: 048
  2. BUPROPRION XL 150MG ? [Suspect]
     Indication: DRUG EFFECT DECREASED
     Dosage: 150MG DAILY PO (~12 MONTHS AGO)
     Route: 048
  3. DIAZEPAM [Suspect]
     Indication: DRUG EFFECT DECREASED
     Dosage: 10MG TID PO (~12 MONTHS AGO)
     Route: 048
  4. DIAZEPAM [Suspect]
     Indication: DRUG EFFECT DECREASED
     Dosage: 150MG DAILY PO (~12 MONTHS AGO)
     Route: 048

REACTIONS (2)
  - DRUG EFFECT DECREASED [None]
  - PRODUCT SUBSTITUTION ISSUE [None]
